FAERS Safety Report 11591111 (Version 1)
Quarter: 2015Q4

REPORT INFORMATION
  Report Type: Spontaneous
  Country: US (occurrence: US)
  Receive Date: 20151003
  Receipt Date: 20151003
  Transmission Date: 20160304
  Serious: No
  Sender: FDA-Public Use
  Company Number: US-009507513-1509USA014136

PATIENT
  Age: 49 Year
  Sex: Male

DRUGS (9)
  1. OMEGA-3 MARINE TRIGLYCERIDES [Concomitant]
     Active Substance: FISH OIL
     Dosage: UNKNOWN
  2. ASPIRIN. [Concomitant]
     Active Substance: ASPIRIN
  3. LIPITOR [Concomitant]
     Active Substance: ATORVASTATIN CALCIUM
  4. JANUMET [Concomitant]
     Active Substance: METFORMIN HYDROCHLORIDE\SITAGLIPTIN PHOSPHATE
     Dosage: UNKNOWN
  5. IRBESARTAN. [Concomitant]
     Active Substance: IRBESARTAN
     Dosage: UNKNOWN
  6. BELSOMRA [Suspect]
     Active Substance: SUVOREXANT
     Indication: INSOMNIA
     Dosage: 10 MG, QD (PER DAY)
     Route: 048
     Dates: start: 201509, end: 201509
  7. BELSOMRA [Suspect]
     Active Substance: SUVOREXANT
     Dosage: 20 MG (TWO 10 MG TABLETS), QD (PER DAY)
     Route: 048
     Dates: start: 201509, end: 201509
  8. BELSOMRA [Suspect]
     Active Substance: SUVOREXANT
     Dosage: 15 MG (ONE 10 MG TABLET + HALF OF ANOTHER 10 MG TABLET) QD (PER DAY)
     Route: 048
     Dates: start: 201509, end: 201509
  9. SERTRALINE HYDROCHLORIDE. [Concomitant]
     Active Substance: SERTRALINE HYDROCHLORIDE
     Dosage: UNKNOWN

REACTIONS (4)
  - Hyperventilation [Recovered/Resolved]
  - Drug ineffective [Unknown]
  - Nightmare [Recovered/Resolved]
  - Abnormal dreams [Recovered/Resolved]

NARRATIVE: CASE EVENT DATE: 201509
